FAERS Safety Report 13193335 (Version 6)
Quarter: 2017Q3

REPORT INFORMATION
  Report Type: Spontaneous
  Country: US (occurrence: US)
  Receive Date: 20170207
  Receipt Date: 20170804
  Transmission Date: 20171127
  Serious: Yes (Hospitalization)
  Sender: FDA-Public Use
  Company Number: US-PFIZER INC-2017051864

PATIENT
  Age: 68 Year
  Sex: Female
  Weight: 88.45 kg

DRUGS (19)
  1. COLACE [Concomitant]
     Active Substance: DOCUSATE SODIUM
     Dosage: UNK
  2. NEURONTIN [Concomitant]
     Active Substance: GABAPENTIN
     Dosage: UNK
  3. ZYVOX [Suspect]
     Active Substance: LINEZOLID
     Indication: OSTEOMYELITIS
  4. NORCO [Concomitant]
     Active Substance: ACETAMINOPHEN\HYDROCODONE BITARTRATE
     Indication: PAIN
     Dosage: UNK,EVERY 6 HOURS AS NEEDED, [HYDROCODONE BITARTRATE 10]/ [PARACETAMOL 325]
  5. VENLAFAXINE [Concomitant]
     Active Substance: VENLAFAXINE HYDROCHLORIDE
     Dosage: UNK
  6. VITAMIN E [Concomitant]
     Active Substance: .ALPHA.-TOCOPHEROL
     Dosage: UNK
  7. NORCO [Concomitant]
     Active Substance: ACETAMINOPHEN\HYDROCODONE BITARTRATE
     Indication: FISTULA
     Dosage: UNK, AS NEEDED (10-325 Q6 PRN)
  8. VITAMIN D3 [Concomitant]
     Active Substance: CHOLECALCIFEROL
     Dosage: UNK
  9. ZYVOX [Suspect]
     Active Substance: LINEZOLID
     Indication: OSTEOMYELITIS CHRONIC
     Dosage: 600 MG, TWICE DAILY (ONCE IN THE MORNING AND ONCE IN THE EVENING)
     Route: 048
     Dates: start: 2013
  10. ZYVOX [Suspect]
     Active Substance: LINEZOLID
     Indication: FISTULA
  11. GABAPENTIN. [Concomitant]
     Active Substance: GABAPENTIN
     Indication: PAIN
     Dosage: 100 MG, DAILY
     Route: 048
  12. LEVOTHYROXINE. [Concomitant]
     Active Substance: LEVOTHYROXINE
     Indication: HYPOTHYROIDISM
     Dosage: 88 UG, DAILY
  13. ESCITALOPRAM [Concomitant]
     Active Substance: ESCITALOPRAM OXALATE
     Dosage: UNK
  14. LEXAPRO [Concomitant]
     Active Substance: ESCITALOPRAM OXALATE
     Dosage: 10 MG, 1X/DAY
  15. EFFEXOR [Concomitant]
     Active Substance: VENLAFAXINE HYDROCHLORIDE
     Dosage: UNK
  16. VITAMIN B [Concomitant]
     Active Substance: VITAMIN B
     Dosage: UNK
  17. FLUCONAZOLE. [Concomitant]
     Active Substance: FLUCONAZOLE
     Indication: FUNGAL INFECTION
     Dosage: 2 DF, DAILY, 2 TABLETS A DAY
     Dates: start: 201301
  18. SYNTHROID [Concomitant]
     Active Substance: LEVOTHYROXINE SODIUM
     Dosage: UNK
  19. VITAMIN D [Concomitant]
     Active Substance: CHOLECALCIFEROL
     Indication: SUPPLEMENTATION THERAPY
     Dosage: UNK
     Dates: start: 2015

REACTIONS (17)
  - Bone pain [Not Recovered/Not Resolved]
  - Infection [Not Recovered/Not Resolved]
  - Erythema [Unknown]
  - Product use issue [Not Recovered/Not Resolved]
  - Drug dose omission [Unknown]
  - Rash pustular [Unknown]
  - Tinnitus [Not Recovered/Not Resolved]
  - Swelling [Unknown]
  - Product use in unapproved indication [Recovering/Resolving]
  - Nausea [Unknown]
  - Condition aggravated [Unknown]
  - Stress [Unknown]
  - Nervousness [Not Recovered/Not Resolved]
  - Pruritus [Unknown]
  - Feeling abnormal [Not Recovered/Not Resolved]
  - Peripheral swelling [Unknown]
  - Fungal infection [Unknown]

NARRATIVE: CASE EVENT DATE: 20170205
